FAERS Safety Report 5803393-3 (Version None)
Quarter: 2008Q3

REPORT INFORMATION
  Report Type: 
  Country: None (occurrence: None)
  Receive Date: 20080708
  Receipt Date: 20080630
  Transmission Date: 20090109
  Serious: Yes (Hospitalization)
  Sender: FDA-Public Use
  Company Number: US-AMGEN-QUU286395

PATIENT
  Sex: Female

DRUGS (8)
  1. EPOGEN [Suspect]
     Indication: DIALYSIS
     Route: 058
     Dates: start: 19920101, end: 20070601
  2. ARANESP [Suspect]
  3. CALCIUM CARBONATE [Concomitant]
  4. MULTI-VITAMINS [Concomitant]
  5. CARTIA XT [Concomitant]
  6. TYLENOL PM [Concomitant]
  7. RESTORIL [Concomitant]
  8. TRAMADOL HCL [Concomitant]

REACTIONS (8)
  - ARTERIOVENOUS GRAFT SITE HAEMORRHAGE [None]
  - DYSPHONIA [None]
  - FEELING ABNORMAL [None]
  - HAEMOGLOBIN DECREASED [None]
  - HYPERHIDROSIS [None]
  - MALAISE [None]
  - VARICELLA [None]
  - VOMITING [None]
